FAERS Safety Report 15694064 (Version 1)
Quarter: 2018Q4

REPORT INFORMATION
  Report Type: Spontaneous
  Country: US (occurrence: US)
  Receive Date: 20181206
  Receipt Date: 20181206
  Transmission Date: 20190205
  Serious: No
  Sender: FDA-Public Use
  Company Number: US-BAUSCH-BL-2018-008185

PATIENT
  Age: 70 Year
  Sex: Female
  Weight: 70.37 kg

DRUGS (1)
  1. TIMOPTIC [Suspect]
     Active Substance: TIMOLOL MALEATE
     Indication: GLAUCOMA
     Dosage: IN RIGHT EYE
     Route: 047
     Dates: start: 20180318, end: 20180319

REACTIONS (4)
  - Eye pain [Recovering/Resolving]
  - Eye swelling [Recovering/Resolving]
  - Eye pruritus [Recovering/Resolving]
  - Erythema [Recovering/Resolving]

NARRATIVE: CASE EVENT DATE: 20180319
